FAERS Safety Report 6340240-8 (Version None)
Quarter: 2009Q3

REPORT INFORMATION
  Report Type: 
  Country: None (occurrence: None)
  Receive Date: 20090902
  Receipt Date: 20090821
  Transmission Date: 20100115
  Serious: Yes (Other)
  Sender: FDA-Public Use
  Company Number: JPI-P-007590

PATIENT
  Age: 64 Year
  Sex: Female

DRUGS (13)
  1. XYREM [Suspect]
     Indication: CATAPLEXY
     Dosage: 4.5 GM (2.25 GM, 2 IN 1 D), ORAL
     Route: 048
     Dates: start: 20021031
  2. METHYLPHENIDATE (PILL) [Concomitant]
  3. ESOMEPRAZOLE (PILL) [Concomitant]
  4. SERTRALINE (PILL) [Concomitant]
  5. LISINOPRIL (PILL) [Concomitant]
  6. MONTELUKAST SODIUM (PILL) [Concomitant]
  7. SITAGLIPTIN W/METFORMIN HYDROCHLORIDE (PILL) [Concomitant]
  8. ACETYLSALICYLIC ACID (PILL) [Concomitant]
  9. FLUTICASONE (INHALANT) [Concomitant]
  10. ALBUTEROL NEBULIZER (INHALANT) [Concomitant]
  11. TRIAMCINOLONE (INHALANT) [Concomitant]
  12. MULTI-VITAMIN (PILL) [Concomitant]
  13. CALCIUM CARBONATE (TABLETS) [Concomitant]

REACTIONS (8)
  - BREAST CANCER [None]
  - CATAPLEXY [None]
  - CONTUSION [None]
  - FALL [None]
  - HAEMORRHOIDS [None]
  - PAIN [None]
  - RENAL INJURY [None]
  - RIB FRACTURE [None]
